FAERS Safety Report 7081373-0 (Version None)
Quarter: 2010Q4

REPORT INFORMATION
  Report Type: 
  Country: None (occurrence: None)
  Receive Date: 20101103
  Receipt Date: 20101026
  Transmission Date: 20110411
  Serious: Yes (Hospitalization)
  Sender: FDA-Public Use
  Company Number: PHHY2010DE64244

PATIENT
  Sex: Female

DRUGS (1)
  1. EXTAVIA [Suspect]
     Indication: MULTIPLE SCLEROSIS
     Dosage: 250 MICROG/ML, QOD
     Route: 058
     Dates: start: 20100323, end: 20100801

REACTIONS (4)
  - BREAST CANCER [None]
  - INJECTION SITE ERYTHEMA [None]
  - INJECTION SITE INFLAMMATION [None]
  - WRONG TECHNIQUE IN DRUG USAGE PROCESS [None]
